FAERS Safety Report 25814466 (Version 1)
Quarter: 2025Q3

REPORT INFORMATION
  Report Type: Spontaneous
  Country: CA (occurrence: CA)
  Receive Date: 20250917
  Receipt Date: 20250917
  Transmission Date: 20251021
  Serious: Yes (Death, Hospitalization, Other)
  Sender: UCB
  Company Number: CA-UCBSA-2025056320

PATIENT
  Age: 64 Year
  Sex: Female

DRUGS (1)
  1. BIMZELX [Suspect]
     Active Substance: BIMEKIZUMAB-BKZX
     Indication: Product used for unknown indication
     Dates: end: 20250825

REACTIONS (2)
  - Death [Fatal]
  - Shock [Unknown]

NARRATIVE: CASE EVENT DATE: 20250825
